FAERS Safety Report 18481893 (Version 2)
Quarter: 2021Q1

REPORT INFORMATION
  Report Type: Spontaneous
  Country: US (occurrence: US)
  Receive Date: 20201109
  Receipt Date: 20210118
  Transmission Date: 20210419
  Serious: No
  Sender: FDA-Public Use
  Company Number: US-PFIZER INC-2018211353

PATIENT
  Age: 77 Year
  Sex: Female

DRUGS (4)
  1. LYRICA [Suspect]
     Active Substance: PREGABALIN
     Indication: TRIGEMINAL NEURALGIA
     Dosage: 350 MG, 3X/DAY
     Route: 048
  2. LYRICA [Suspect]
     Active Substance: PREGABALIN
     Indication: PAIN
     Dosage: UNK (TAKE 1 CAPSULE (300 MG) BY ORAL ROUTE THREE TIMES PER DAY. TAKE ALONG WITH LYRICA 50 MG)
     Route: 048
  3. LYRICA [Suspect]
     Active Substance: PREGABALIN
     Indication: MULTIPLE SCLEROSIS
     Dosage: 300 MG, 3X/DAY
     Route: 048
  4. LYRICA [Suspect]
     Active Substance: PREGABALIN
     Dosage: UNK (TAKE 1 CAPSULE (50 MG) BY ORAL ROUTE TWO TO THREE TIMES PER DAY. TAKE ALONG WITH LYRICA 300 MG)
     Route: 048

REACTIONS (4)
  - Prescribed overdose [Unknown]
  - Product dispensing error [Unknown]
  - Musculoskeletal disorder [Unknown]
  - Speech disorder [Unknown]
